FAERS Safety Report 22660746 (Version 1)
Quarter: 2023Q2

REPORT INFORMATION
  Report Type: Report from Study
  Country: US (occurrence: US)
  Receive Date: 20230630
  Receipt Date: 20230630
  Transmission Date: 20230722
  Serious: Yes (Other)
  Sender: FDA-Public Use
  Company Number: US-GW PHARMA-2023-US-001307

PATIENT
  Sex: Male

DRUGS (1)
  1. EPIDIOLEX [Suspect]
     Active Substance: CANNABIDIOL
     Indication: Epilepsy
     Dosage: 3 MILLILITER
     Route: 048
     Dates: start: 202201

REACTIONS (4)
  - Pneumonia [Unknown]
  - Gastrointestinal infection [Unknown]
  - Off label use [Unknown]
  - Unevaluable event [Unknown]
